FAERS Safety Report 4521933-1 (Version None)
Quarter: 2004Q4

REPORT INFORMATION
  Report Type: 
  Country: None (occurrence: None)
  Receive Date: 20041207
  Receipt Date: 20041125
  Transmission Date: 20050328
  Serious: Yes (Other)
  Sender: FDA-Public Use
  Company Number: 2004085808

PATIENT
  Age: 62 Year
  Sex: Male
  Weight: 95.2554 kg

DRUGS (3)
  1. VIAGRA [Suspect]
     Indication: ERECTILE DYSFUNCTION
     Dosage: 100 MG (100 MG, AS NECESSARY), ORAL
     Route: 048
     Dates: start: 20041001, end: 20041029
  2. NABUMETONE [Concomitant]
  3. MULTIPLE VITAMINS (ASCORBIC AICD, ERGOCALCIFEROL, FOLIC ACID, RETINOL, [Concomitant]

REACTIONS (8)
  - BLOOD PRESSURE DECREASED [None]
  - HEART RATE INCREASED [None]
  - HYPERHIDROSIS [None]
  - LOSS OF CONSCIOUSNESS [None]
  - NAUSEA [None]
  - PALLOR [None]
  - SENSATION OF HEAVINESS [None]
  - SENSATION OF PRESSURE [None]
